FAERS Safety Report 7805935-5 (Version None)
Quarter: 2011Q4

REPORT INFORMATION
  Report Type: 
  Country: None (occurrence: None)
  Receive Date: 20111007
  Receipt Date: 20111007
  Transmission Date: 20120403
  Serious: No
  Sender: FDA-Public Use
  Company Number: None

PATIENT

DRUGS (1)
  1. VIOXX [Suspect]

REACTIONS (15)
  - CHEST DISCOMFORT [None]
  - MUSCULAR WEAKNESS [None]
  - VOMITING [None]
  - PSYCHOTIC DISORDER [None]
  - NAUSEA [None]
  - MALAISE [None]
  - BLOOD PRESSURE INCREASED [None]
  - DIZZINESS [None]
  - FALL [None]
  - CARDIAC STRESS TEST ABNORMAL [None]
  - UNEVALUABLE EVENT [None]
  - HYPERVENTILATION [None]
  - HYPOAESTHESIA [None]
  - CARDIAC DISORDER [None]
  - HEART RATE IRREGULAR [None]
